FAERS Safety Report 14277755 (Version 1)
Quarter: 2017Q4

REPORT INFORMATION
  Report Type: Report from Study
  Country: None (occurrence: DE)
  Receive Date: 20171212
  Receipt Date: 20171212
  Transmission Date: 20180321
  Serious: Yes (Death)
  Sender: FDA-Public Use
  Company Number: DE-ABBVIE-17K-062-2191005-00

PATIENT
  Age: 76 Year
  Sex: Female

DRUGS (2)
  1. DUODOPA [Suspect]
     Active Substance: CARBIDOPA\LEVODOPA
     Indication: PARKINSON^S DISEASE
     Dosage: MD 0 ML ??CRD 5.5 ML/H ??CRN 5.5 ML/H  ??ED 0 ML
     Route: 050
     Dates: start: 20170612
  2. FRESUBIN ORIGINAL FIBER [Concomitant]
     Indication: DYSPHAGIA
     Dosage: EASY BAG
     Route: 050

REACTIONS (2)
  - Device occlusion [Unknown]
  - Death [Fatal]

NARRATIVE: CASE EVENT DATE: 2017
